APPROVED DRUG PRODUCT: DEXAMETHASONE
Active Ingredient: DEXAMETHASONE
Strength: 1MG
Dosage Form/Route: TABLET;ORAL
Application: A218372 | Product #003 | TE Code: AB
Applicant: COREPHARMA LLC
Approved: Sep 17, 2024 | RLD: No | RS: No | Type: RX